FAERS Safety Report 25714272 (Version 2)
Quarter: 2025Q3

REPORT INFORMATION
  Report Type: Spontaneous
  Country: CN (occurrence: CN)
  Receive Date: 20250822
  Receipt Date: 20250908
  Transmission Date: 20251020
  Serious: Yes (Hospitalization, Other)
  Sender: Kenvue
  Company Number: CN-KENVUE-20250807051

PATIENT

DRUGS (3)
  1. CHILDRENS MOTRIN [Suspect]
     Active Substance: IBUPROFEN
     Indication: Pyrexia
     Dosage: 4 MILLILITER, FOUR TIME A DAY (Q6H)
     Route: 048
     Dates: start: 20250807, end: 20250809
  2. CEFIXIME [Suspect]
     Active Substance: CEFIXIME
     Indication: Infection
     Dosage: 35 MILLIGRAM, TWICE A DAY
     Route: 048
     Dates: start: 20250807, end: 20250809
  3. CEFIXIME [Suspect]
     Active Substance: CEFIXIME
     Indication: Pyrexia

REACTIONS (2)
  - White blood cell count decreased [Recovered/Resolved]
  - Therapeutic product effect incomplete [Unknown]

NARRATIVE: CASE EVENT DATE: 20250807
